FAERS Safety Report 10184330 (Version 2)
Quarter: 2014Q2

REPORT INFORMATION
  Report Type: Spontaneous
  Country: US (occurrence: US)
  Receive Date: 20140520
  Receipt Date: 20140530
  Transmission Date: 20141212
  Serious: No
  Sender: FDA-Public Use
  Company Number: US-009507513-1405USA003402

PATIENT
  Age: 52 Year
  Sex: Male

DRUGS (4)
  1. REBETOL [Suspect]
     Indication: HEPATITIS C
     Dosage: 800 MG, QD
     Route: 048
  2. PEGINTRON [Suspect]
     Indication: HEPATITIS C
     Dosage: 180 MICROGRAM, QW
  3. TELAPREVIR [Suspect]
     Dosage: 750 MG, Q8H, 12 WEEKS
  4. CYCLOSPORINE [Suspect]
     Indication: HEPATITIS C
     Dosage: 25 MG, QD, THE DOSAGE WAS REDUCED TO ONE FOURTH OF THE DAILY DOSE AND WAS GIVEN ONCE PER DAY

REACTIONS (1)
  - Anaemia [Unknown]
